FAERS Safety Report 16885184 (Version 2)
Quarter: 2019Q4

REPORT INFORMATION
  Report Type: Spontaneous
  Country: US (occurrence: US)
  Receive Date: 20191004
  Receipt Date: 20191118
  Transmission Date: 20200122
  Serious: No
  Sender: FDA-Public Use
  Company Number: US-PFIZER INC-2019378141

PATIENT
  Age: 63 Year
  Sex: Female

DRUGS (1)
  1. LYRICA [Suspect]
     Active Substance: PREGABALIN
     Dosage: 300 MG, UNK (TOOK 2 LYRICA 150 MG AT THE SAME TIME)

REACTIONS (3)
  - Wrong dose [Unknown]
  - Dyskinesia [Unknown]
  - Somnolence [Unknown]
